FAERS Safety Report 8936581 (Version 1)
Quarter: 2012Q4

REPORT INFORMATION
  Report Type: 
  Country: DE (occurrence: DE)
  Receive Date: 20121130
  Receipt Date: 20121130
  Transmission Date: 20130627
  Serious: Yes (Hospitalization)
  Sender: FDA-Public Use
  Company Number: DE-PFIZER INC-2012296205

PATIENT
  Age: 52 Year
  Sex: Female

DRUGS (2)
  1. AROMASIN [Suspect]
  2. HEPARIN [Suspect]

REACTIONS (3)
  - Swelling face [Unknown]
  - Hypoaesthesia [Unknown]
  - Bone pain [Unknown]
